FAERS Safety Report 23649503 (Version 1)
Quarter: 2024Q1

REPORT INFORMATION
  Report Type: Spontaneous
  Country: OM (occurrence: OM)
  Receive Date: 20240319
  Receipt Date: 20240319
  Transmission Date: 20240410
  Serious: Yes (Other)
  Sender: FDA-Public Use
  Company Number: OM-BAYER-2024A038602

PATIENT
  Age: 4 Year
  Sex: Male

DRUGS (1)
  1. LAROTRECTINIB [Suspect]
     Active Substance: LAROTRECTINIB
     Indication: Congenital fibrosarcoma
     Dosage: UNK
     Dates: end: 20240226

REACTIONS (1)
  - Metastases to lung [None]
